FAERS Safety Report 8788761 (Version 1)
Quarter: 2012Q4

REPORT INFORMATION
  Report Type: 
  Country: US (occurrence: US)
  Receive Date: 20120917
  Receipt Date: 20120917
  Transmission Date: 20130627
  Serious: No
  Sender: FDA-Public Use
  Company Number: US-JNJFOC-20120901389

PATIENT
  Sex: Female
  Weight: 66.68 kg

DRUGS (4)
  1. DURAGESIC [Suspect]
     Indication: PAIN
     Route: 062
  2. DURAGESIC [Suspect]
     Indication: PAIN
     Route: 062
     Dates: start: 201205, end: 20120821
  3. UNKNOWN MEDICATION [Concomitant]
     Indication: CONTRACEPTION
     Route: 065
     Dates: start: 200712
  4. UNKNOWN MEDICATION [Concomitant]
     Route: 065

REACTIONS (7)
  - Dizziness [Recovered/Resolved]
  - Drug ineffective [Unknown]
  - Wrong technique in drug usage process [Unknown]
  - Product quality issue [Unknown]
  - Product quality issue [Unknown]
  - Application site reaction [Unknown]
  - Product physical issue [Unknown]
